FAERS Safety Report 6610046-0 (Version None)
Quarter: 2010Q1

REPORT INFORMATION
  Report Type: 
  Country: None (occurrence: None)
  Receive Date: 20100302
  Receipt Date: 20100216
  Transmission Date: 20100710
  Serious: Yes (Hospitalization)
  Sender: FDA-Public Use
  Company Number: BE-CELGENEUS-013-50794-09112003

PATIENT
  Sex: Female
  Weight: 56.3 kg

DRUGS (8)
  1. VIDAZA [Suspect]
     Route: 058
     Dates: start: 20091022, end: 20091028
  2. VIDAZA [Suspect]
     Route: 058
     Dates: start: 20090923
  3. ZOVIRAX [Concomitant]
     Indication: DRUG USE FOR UNKNOWN INDICATION
     Dosage: 800MG HALF A TABLET
     Route: 065
  4. EXACYL [Concomitant]
     Indication: DRUG USE FOR UNKNOWN INDICATION
     Dosage: 1-2 VIALS
     Route: 065
  5. DIFLUCAN [Concomitant]
     Indication: DRUG USE FOR UNKNOWN INDICATION
     Route: 065
  6. STILNOCT [Concomitant]
     Indication: DRUG USE FOR UNKNOWN INDICATION
     Dosage: 5MG OR HALF A TABLET
     Route: 065
  7. AMOXICILLIN AND CLAVULANATE POTASSIUM [Concomitant]
     Indication: DRUG USE FOR UNKNOWN INDICATION
     Route: 065
  8. CIPROXINE [Concomitant]
     Indication: DRUG USE FOR UNKNOWN INDICATION
     Route: 065

REACTIONS (2)
  - ASPERGILLOSIS [None]
  - FEBRILE NEUTROPENIA [None]
